FAERS Safety Report 20333502 (Version 3)
Quarter: 2022Q1

REPORT INFORMATION
  Report Type: Spontaneous
  Country: JP (occurrence: JP)
  Receive Date: 20220113
  Receipt Date: 20220315
  Transmission Date: 20220423
  Serious: Yes (Other)
  Sender: FDA-Public Use
  Company Number: JP-PFIZER INC-202200022592

PATIENT
  Age: 70 Year
  Sex: Male
  Weight: 62 kg

DRUGS (14)
  1. CELECOXIB [Suspect]
     Active Substance: CELECOXIB
     Indication: Spinal stenosis
     Dosage: 100 MG, 2X/DAY
     Route: 048
     Dates: start: 20210918, end: 20211213
  2. CELECOXIB [Suspect]
     Active Substance: CELECOXIB
     Indication: Back pain
  3. MIROGABALIN BESYLATE [Concomitant]
     Active Substance: MIROGABALIN BESYLATE
     Dosage: UNK
     Route: 048
     Dates: start: 20210119, end: 20211213
  4. AROFUTO [Concomitant]
     Dosage: UNK
     Route: 048
     Dates: start: 20210121, end: 20211213
  5. TRAMCET [Concomitant]
     Active Substance: ACETAMINOPHEN\TRAMADOL
     Dosage: UNK
     Route: 048
     Dates: start: 20210121, end: 20211213
  6. LOXOPROFEN SODIUM [Concomitant]
     Active Substance: LOXOPROFEN SODIUM
     Dosage: UNK
     Route: 062
     Dates: start: 20210810, end: 20211213
  7. LIALDA [Concomitant]
     Active Substance: MESALAMINE
     Dosage: UNK
     Route: 048
     Dates: start: 20170306, end: 20220113
  8. BIO-THREE [Concomitant]
     Active Substance: HERBALS
     Dosage: UNK
     Route: 048
     Dates: start: 20210729, end: 20220113
  9. BETAMETHASONE [Concomitant]
     Active Substance: BETAMETHASONE
     Dosage: UNK
     Route: 054
     Dates: start: 20211007, end: 20220113
  10. HERBALS [Concomitant]
     Active Substance: HERBALS
     Dosage: UNK
     Route: 048
     Dates: start: 20211007, end: 20220113
  11. GASCON [DIMETICONE] [Concomitant]
     Dosage: UNK
     Route: 048
     Dates: start: 20211007, end: 20220113
  12. XYLOCAINE [Concomitant]
     Active Substance: LIDOCAINE HYDROCHLORIDE
     Dosage: UNK
     Route: 062
     Dates: start: 20211007, end: 20220113
  13. PENTASA [Concomitant]
     Active Substance: MESALAMINE
     Dosage: UNK
     Route: 054
     Dates: start: 20211125, end: 20220113
  14. ROSUVASTATIN CALCIUM [Concomitant]
     Active Substance: ROSUVASTATIN CALCIUM
     Dosage: UNK
     Route: 048
     Dates: start: 20200107, end: 20220105

REACTIONS (3)
  - Colitis ulcerative [Recovered/Resolved]
  - Gastrointestinal haemorrhage [Recovered/Resolved]
  - Off label use [Unknown]

NARRATIVE: CASE EVENT DATE: 20210918
